APPROVED DRUG PRODUCT: ETODOLAC
Active Ingredient: ETODOLAC
Strength: 600MG
Dosage Form/Route: TABLET, EXTENDED RELEASE;ORAL
Application: A075665 | Product #001 | TE Code: AB
Applicant: TEVA PHARMACEUTICALS USA INC
Approved: Jul 31, 2000 | RLD: No | RS: Yes | Type: RX